FAERS Safety Report 24348348 (Version 1)
Quarter: 2024Q3

REPORT INFORMATION
  Report Type: Spontaneous
  Country: NL (occurrence: NL)
  Receive Date: 20240923
  Receipt Date: 20240923
  Transmission Date: 20241017
  Serious: Yes (Other)
  Sender: ORGANON
  Company Number: None

PATIENT
  Age: 66 Year
  Sex: Female
  Weight: 70 kg

DRUGS (1)
  1. EZETIMIBE\SIMVASTATIN [Suspect]
     Active Substance: EZETIMIBE\SIMVASTATIN
     Indication: Hypercholesterolaemia
     Dosage: TABLET, 10/20 MG (MILLIGRAM),
     Dates: start: 20000801, end: 20240902

REACTIONS (3)
  - Pruritus [Recovering/Resolving]
  - Pain [Recovering/Resolving]
  - Skin swelling [Recovering/Resolving]
